FAERS Safety Report 7983802-4 (Version None)
Quarter: 2011Q4

REPORT INFORMATION
  Report Type: 
  Country: None (occurrence: None)
  Receive Date: 20111216
  Receipt Date: 20111212
  Transmission Date: 20120403
  Serious: Yes (Other)
  Sender: FDA-Public Use
  Company Number: IN-ACCORD-011609

PATIENT
  Age: 45 Year
  Sex: Female

DRUGS (5)
  1. DEXAMETHASONE [Concomitant]
     Indication: PREMEDICATION
     Route: 048
  2. DOCETAXEL [Suspect]
     Dosage: DOCETAXEL 100 MG/M? CYCLED EVERY 21 DAYS.
     Route: 042
  3. ONDANSETRON [Concomitant]
     Indication: PREMEDICATION
     Route: 042
  4. RANITIDINE [Concomitant]
     Route: 042
  5. PHENIRAMINE MALEATE [Concomitant]
     Route: 042

REACTIONS (1)
  - DERMATITIS [None]
